FAERS Safety Report 13681725 (Version 4)
Quarter: 2017Q4

REPORT INFORMATION
  Report Type: Spontaneous
  Country: US (occurrence: US)
  Receive Date: 20170623
  Receipt Date: 20171004
  Transmission Date: 20180320
  Serious: Yes (Hospitalization, Other)
  Sender: FDA-Public Use
  Company Number: US-INCYTE CORPORATION-2017IN004896

PATIENT

DRUGS (7)
  1. JAKAFI [Suspect]
     Active Substance: RUXOLITINIB
     Dosage: 5 MG, BID
     Route: 048
     Dates: start: 20170823
  2. DOXEPIN [Concomitant]
     Active Substance: DOXEPIN
     Indication: PRODUCT USED FOR UNKNOWN INDICATION
  3. JAKAFI [Suspect]
     Active Substance: RUXOLITINIB
     Dosage: 15 MG, BID
     Route: 048
     Dates: start: 20170103, end: 20170217
  4. JAKAFI [Suspect]
     Active Substance: RUXOLITINIB
     Dosage: 15 MG, BID
     Route: 048
     Dates: start: 20150917, end: 20170901
  5. JAKAFI [Suspect]
     Active Substance: RUXOLITINIB
     Indication: POLYCYTHAEMIA VERA
     Dosage: 10 MG, BID
     Route: 048
     Dates: start: 20150915, end: 20170103
  6. JAKAFI [Suspect]
     Active Substance: RUXOLITINIB
     Dosage: 15 MG, QD IN AM AND 10 MG IN PM
     Dates: start: 20170217, end: 20170815
  7. JAKAFI [Suspect]
     Active Substance: RUXOLITINIB
     Dosage: 10 MG, BID
     Route: 048
     Dates: start: 20170816, end: 20170822

REACTIONS (19)
  - Tinnitus [Unknown]
  - Weight decreased [Unknown]
  - Haematocrit increased [Unknown]
  - Deafness unilateral [Unknown]
  - Polyneuropathy [Unknown]
  - Fatigue [Unknown]
  - General physical condition abnormal [Unknown]
  - Rash [Unknown]
  - Platelet count increased [Unknown]
  - Weight increased [Unknown]
  - Neuropathy peripheral [Unknown]
  - Neuritis [Unknown]
  - White blood cell count increased [Unknown]
  - Rash pustular [Unknown]
  - Dyspnoea [Unknown]
  - Pruritus [Unknown]
  - Feeling abnormal [Unknown]
  - Renal failure [Unknown]
  - Anaemia [Unknown]

NARRATIVE: CASE EVENT DATE: 201709
